FAERS Safety Report 14909289 (Version 1)
Quarter: 2018Q2

REPORT INFORMATION
  Report Type: Report from Study
  Country: CA (occurrence: CA)
  Receive Date: 20180517
  Receipt Date: 20180517
  Transmission Date: 20180711
  Serious: Yes (Hospitalization)
  Sender: FDA-Public Use
  Company Number: CA-JNJFOC-20180515811

PATIENT
  Age: 38 Year
  Sex: Female
  Weight: 113.85 kg

DRUGS (1)
  1. REMICADE [Suspect]
     Active Substance: INFLIXIMAB
     Indication: CROHN^S DISEASE
     Dosage: STRENGTH = 100 MG
     Route: 042
     Dates: start: 20140129, end: 20180406

REACTIONS (2)
  - Systemic lupus erythematosus [Recovering/Resolving]
  - Drug specific antibody present [Recovering/Resolving]

NARRATIVE: CASE EVENT DATE: 20180423
